FAERS Safety Report 24311673 (Version 2)
Quarter: 2024Q3

REPORT INFORMATION
  Report Type: Spontaneous
  Country: US (occurrence: US)
  Receive Date: 20240912
  Receipt Date: 20240912
  Transmission Date: 20241017
  Serious: Yes (Other)
  Sender: PFIZER
  Company Number: US-PFIZER INC-PV202400020651

PATIENT
  Age: 88 Year
  Sex: Female

DRUGS (2)
  1. IBRANCE [Suspect]
     Active Substance: PALBOCICLIB
     Dosage: TAKE 1 TABLET BY MOUTH ONCE DAILY FOR 21 DAYS, FOLLOWED BY 7 DAYS OFF
     Route: 048
  2. IBRANCE [Suspect]
     Active Substance: PALBOCICLIB
     Dosage: 75 MG QD (EVERYDAY) FOR 2 WEEKS ON THEN ONE WEEK OFF
     Route: 048

REACTIONS (3)
  - Cytopenia [Unknown]
  - Off label use [Unknown]
  - Product use issue [Unknown]
